FAERS Safety Report 5653998-8 (Version None)
Quarter: 2008Q1

REPORT INFORMATION
  Report Type: 
  Country: None (occurrence: None)
  Receive Date: 20080201
  Receipt Date: 20050321
  Transmission Date: 20080703
  Serious: No
  Sender: FDA-Public Use
  Company Number: 20084513

PATIENT
  Sex: Female

DRUGS (1)
  1. LIORESAL [Suspect]
     Indication: MUSCLE SPASTICITY
     Dosage: MCG, DAILY, INTRATHECAL

REACTIONS (1)
  - HYPERTONIA [None]
